FAERS Safety Report 24807932 (Version 3)
Quarter: 2025Q1

REPORT INFORMATION
  Report Type: Spontaneous
  Country: US (occurrence: US)
  Receive Date: 20250106
  Receipt Date: 20250130
  Transmission Date: 20250409
  Serious: No
  Sender: Haleon PLC
  Company Number: US-HALEON-2220354

PATIENT
  Age: 40 Year
  Sex: Female

DRUGS (1)
  1. ABREVA [Suspect]
     Active Substance: DOCOSANOL
     Indication: Herpes virus infection
     Dates: start: 20241210

REACTIONS (3)
  - Drug ineffective for unapproved indication [Unknown]
  - Product complaint [Unknown]
  - Product use in unapproved indication [Unknown]
